APPROVED DRUG PRODUCT: VIDEX
Active Ingredient: DIDANOSINE
Strength: 150MG **Federal Register determination that product was not discontinued or withdrawn for safety or effectiveness reasons**
Dosage Form/Route: TABLET, CHEWABLE;ORAL
Application: N020154 | Product #005
Applicant: BRISTOL MYERS SQUIBB CO PHARMACEUTICAL RESEARCH INSTITUTE
Approved: Oct 9, 1991 | RLD: Yes | RS: No | Type: DISCN